FAERS Safety Report 18136852 (Version 6)
Quarter: 2022Q2

REPORT INFORMATION
  Report Type: Spontaneous
  Country: CA (occurrence: CA)
  Receive Date: 20200812
  Receipt Date: 20220510
  Transmission Date: 20220721
  Serious: Yes (Hospitalization, Other)
  Sender: FDA-Public Use
  Company Number: CA-AUROBINDO-AUR-APL-2020-038329

PATIENT
  Age: 44 Year
  Sex: Male

DRUGS (24)
  1. DULOXETINE [Interacting]
     Active Substance: DULOXETINE
     Indication: Pain
     Dosage: UNK
     Route: 065
  2. DULOXETINE [Interacting]
     Active Substance: DULOXETINE
     Indication: Neuralgia
  3. ONDANSETRON [Suspect]
     Active Substance: ONDANSETRON
     Indication: Prophylaxis
     Dosage: UNK UNK, DAILY
     Route: 042
  4. AMITRIPTYLINE [Interacting]
     Active Substance: AMITRIPTYLINE
     Indication: Pain
     Dosage: UNK
     Route: 065
  5. AMITRIPTYLINE [Interacting]
     Active Substance: AMITRIPTYLINE
     Indication: Neuralgia
  6. CANNABIDIOL\HERBALS [Interacting]
     Active Substance: CANNABIDIOL\HERBALS
     Indication: Pain
     Dosage: UNK (VAPORIZED OIL)
     Route: 065
  7. CANNABIDIOL\HERBALS [Interacting]
     Active Substance: CANNABIDIOL\HERBALS
     Indication: Neuralgia
  8. DRONABINOL [Interacting]
     Active Substance: DRONABINOL
     Indication: Analgesic therapy
     Dosage: 0.3 G/WEEK- 1
     Route: 065
  9. DRONABINOL [Interacting]
     Active Substance: DRONABINOL
     Dosage: UNK (VAPORIZED THC USE (TWO-THREE TIMES HIS USUAL DOSE))
     Route: 065
  10. KETAMINE [Interacting]
     Active Substance: KETAMINE
     Indication: Pain
     Dosage: 0.5 MG/KG- 1 (BOLUS) (HIGH DOSE, 30 HR OVER FIVE DAYS; 8:00 AM TO 2:00 PM EACH DAY)
     Route: 042
  11. KETAMINE [Interacting]
     Active Substance: KETAMINE
     Indication: Neuralgia
     Dosage: 0.5 MG/KG-1 HR-1 (BOLUS) (HIGH DOSE, 30 HR OVER FIVE DAYS; 8:00 AM TO 2:00 PM EACH DAY)
     Route: 040
  12. KETAMINE [Interacting]
     Active Substance: KETAMINE
     Dosage: 1.6 MILLIGRAM/KILOGRAM, EVERY HOUR (HIGH DOSE, 30 HR OVER FIVE DAYS; 8:00 AM TO 2:00 PM EACH DAY)
     Route: 042
  13. KETAMINE [Interacting]
     Active Substance: KETAMINE
     Indication: Neuralgia
     Dosage: 1.6 MILLIGRAM/KILOGRAM, EVERY HOUR
     Route: 042
  14. MIDAZOLAM [Interacting]
     Active Substance: MIDAZOLAM
     Indication: Prophylaxis
     Dosage: UNK UNK, DAILY
     Route: 042
  15. TEMAZEPAM [Interacting]
     Active Substance: TEMAZEPAM
     Indication: Pain
     Dosage: UNK
     Route: 065
  16. TEMAZEPAM [Interacting]
     Active Substance: TEMAZEPAM
     Indication: Neuralgia
  17. ZOPICLONE [Interacting]
     Active Substance: ZOPICLONE
     Indication: Pain
     Dosage: UNK
     Route: 065
  18. ZOPICLONE [Interacting]
     Active Substance: ZOPICLONE
     Indication: Neuralgia
  19. LIDOCAINE [Suspect]
     Active Substance: LIDOCAINE
     Indication: Analgesic therapy
     Dosage: 5 MG?KG-1 (BOLUS)
     Route: 061
  20. LIDOCAINE [Suspect]
     Active Substance: LIDOCAINE
     Indication: Neuralgia
  21. MAGNESIUM SULFATE [Suspect]
     Active Substance: MAGNESIUM SULFATE
     Indication: Analgesic therapy
     Dosage: 50 MG?KG- 1 BOLUS
     Route: 040
  22. MAGNESIUM SULFATE [Suspect]
     Active Substance: MAGNESIUM SULFATE
     Indication: Neuralgia
     Dosage: 15 MG?KG- 1?HR- 1
     Route: 065
  23. DEXAMETHASONE [Suspect]
     Active Substance: DEXAMETHASONE
     Indication: Prophylaxis
     Dosage: UNK UNK, DAILY
     Route: 042
  24. MAGNESIUM SULFATE [Concomitant]
     Active Substance: MAGNESIUM SULFATE
     Indication: Analgesic therapy
     Dosage: 50 MILLIGRAM/KILOGRAM
     Route: 065

REACTIONS (10)
  - Behaviour disorder [Recovered/Resolved]
  - Drug level increased [Recovered/Resolved]
  - Drug interaction [Recovered/Resolved]
  - Aggression [Recovered/Resolved]
  - Agitation [Recovered/Resolved]
  - Confusional state [Recovered/Resolved]
  - Disinhibition [Recovered/Resolved]
  - Hypersexuality [Recovered/Resolved]
  - Psychotic disorder [Recovered/Resolved]
  - Restlessness [Recovered/Resolved]
